FAERS Safety Report 15753891 (Version 1)
Quarter: 2018Q4

REPORT INFORMATION
  Report Type: Spontaneous
  Country: US (occurrence: US)
  Receive Date: 20181222
  Receipt Date: 20181222
  Transmission Date: 20190205
  Serious: No
  Sender: FDA-Public Use
  Company Number: US-009507513-1812USA006459

PATIENT
  Sex: Female

DRUGS (1)
  1. ASMANEX [Suspect]
     Active Substance: MOMETASONE FUROATE
     Dosage: 1 PUFF ONE TIME DAILY AS DIRECTED

REACTIONS (3)
  - Product quality issue [Unknown]
  - No adverse event [Unknown]
  - Incorrect dose administered by product [Unknown]

NARRATIVE: CASE EVENT DATE: 20181208
